FAERS Safety Report 15191013 (Version 2)
Quarter: 2018Q4

REPORT INFORMATION
  Report Type: Spontaneous
  Country: US (occurrence: US)
  Receive Date: 20180724
  Receipt Date: 20181030
  Transmission Date: 20190204
  Serious: No
  Sender: FDA-Public Use
  Company Number: PHEH2018US029631

PATIENT
  Sex: Female

DRUGS (1)
  1. EXTAVIA [Suspect]
     Active Substance: INTERFERON BETA-1B
     Indication: PRODUCT USED FOR UNKNOWN INDICATION
     Route: 065

REACTIONS (2)
  - Incorrect dose administered [Unknown]
  - Syringe issue [Unknown]
